FAERS Safety Report 15053988 (Version 5)
Quarter: 2019Q3

REPORT INFORMATION
  Report Type: Report from Study
  Country: US (occurrence: US)
  Receive Date: 20180622
  Receipt Date: 20190920
  Transmission Date: 20191004
  Serious: Yes (Hospitalization)
  Sender: FDA-Public Use
  Company Number: PHHY2018US026748

PATIENT

DRUGS (8)
  1. METHOTREXATE. [Concomitant]
     Active Substance: METHOTREXATE
     Indication: LYMPHOCYTIC LEUKAEMIA
     Dosage: 15 MG, QD (TWO NIGHTS/WEEK, 175 MG X FIVE)
     Route: 037
     Dates: start: 20180326
  2. MERCAPTOPURINE. [Concomitant]
     Active Substance: MERCAPTOPURINE
     Indication: LYMPHOCYTIC LEUKAEMIA
     Dosage: 150 MG X2 NIGHTS/WEEK, 175 MG X5 NIGHTS/WEEK
     Route: 048
     Dates: start: 20180326, end: 20180609
  3. MERCAPTOPURINE. [Concomitant]
     Active Substance: MERCAPTOPURINE
     Dosage: 150 MG X2 NIGHTS/WEEK, 175 MG X5 NIGHTS/WEEK
     Route: 048
     Dates: start: 20180618
  4. VINCRISTINE [Concomitant]
     Active Substance: VINCRISTINE
     Indication: LYMPHOCYTIC LEUKAEMIA
     Dosage: 2 MG, Q4W (PER PROTOCOL)
     Route: 042
     Dates: start: 20170626
  5. METHOTREXATE. [Concomitant]
     Active Substance: METHOTREXATE
     Dosage: 45 MG, QW
     Route: 048
     Dates: start: 20180618
  6. METHOTREXATE. [Concomitant]
     Active Substance: METHOTREXATE
     Dosage: 45 MG, QW
     Route: 048
     Dates: start: 20180404, end: 20180612
  7. INC424A [Suspect]
     Active Substance: RUXOLITINIB
     Indication: LYMPHOCYTIC LEUKAEMIA
     Dosage: 100 MG, BID (14 DAYS ON AND 14 DAYS OFF)
     Route: 048
     Dates: start: 20170626
  8. PREDNISONE. [Concomitant]
     Active Substance: PREDNISONE
     Indication: LYMPHOCYTIC LEUKAEMIA
     Dosage: 45 MG, BID X FIVE DAYS (EVERY FOUR WEEKS)
     Route: 048
     Dates: start: 20180326

REACTIONS (1)
  - Meningitis aseptic [Recovered/Resolved]

NARRATIVE: CASE EVENT DATE: 20180610
